FAERS Safety Report 6394191-3 (Version None)
Quarter: 2009Q4

REPORT INFORMATION
  Report Type: 
  Country: None (occurrence: None)
  Receive Date: 20091008
  Receipt Date: 20091006
  Transmission Date: 20100525
  Serious: Yes (Other)
  Sender: FDA-Public Use
  Company Number: US-GILEAD-2009-0022773

PATIENT
  Sex: Female
  Weight: 74.002 kg

DRUGS (9)
  1. LETAIRIS [Suspect]
     Indication: PULMONARY ARTERIAL HYPERTENSION
     Route: 048
     Dates: start: 20080912
  2. CENTRUM SILVER [Concomitant]
  3. SIMVASTATIN [Concomitant]
  4. ASPIRIN [Concomitant]
  5. PLAVIX [Concomitant]
  6. CALCIUM +D [Concomitant]
  7. GLIMEPIRIDE [Concomitant]
  8. LEVOTHYROXINE [Concomitant]
  9. HYDROXYCHLOROQUINE [Concomitant]

REACTIONS (1)
  - NASOPHARYNGEAL CANCER [None]
